FAERS Safety Report 5164609-2 (Version None)
Quarter: 2006Q4

REPORT INFORMATION
  Report Type: 
  Country: None (occurrence: None)
  Receive Date: 20061124
  Receipt Date: 20061106
  Transmission Date: 20070319
  Serious: Yes (Death, Hospitalization, Other)
  Sender: FDA-Public Use
  Company Number: 2006141490

PATIENT
  Age: 70 Year
  Sex: Male
  Weight: 81.6475 kg

DRUGS (1)
  1. CELEBREX [Suspect]
     Indication: BACK PAIN
     Dosage: 400 MG (200 MG, 1 IN 2 D)
     Dates: start: 19990504, end: 20030730

REACTIONS (2)
  - BRAIN DAMAGE [None]
  - TRANSIENT ISCHAEMIC ATTACK [None]
